FAERS Safety Report 8797609 (Version 1)
Quarter: 2012Q4

REPORT INFORMATION
  Report Type: 
  Country: TW (occurrence: TW)
  Receive Date: 20120920
  Receipt Date: 20120920
  Transmission Date: 20130627
  Serious: Yes (Other)
  Sender: FDA-Public Use
  Company Number: TW-JNJFOC-20120905094

PATIENT
  Sex: Female

DRUGS (2)
  1. TOPAMAX [Suspect]
     Indication: MIGRAINE PROPHYLAXIS
     Route: 048
     Dates: start: 20120106, end: 20120202
  2. TOPAMAX [Suspect]
     Indication: NEUROTRANSMITTER LEVEL ALTERED
     Route: 048
     Dates: start: 20120106, end: 20120202

REACTIONS (5)
  - Brain hypoxia [Unknown]
  - Syncope [Unknown]
  - Migraine [Not Recovered/Not Resolved]
  - Hypoaesthesia [Not Recovered/Not Resolved]
  - Fatigue [Unknown]
